FAERS Safety Report 17061550 (Version 2)
Quarter: 2020Q1

REPORT INFORMATION
  Report Type: Report from Study
  Country: IT (occurrence: IT)
  Receive Date: 20191121
  Receipt Date: 20200304
  Transmission Date: 20200409
  Serious: Yes (Other)
  Sender: FDA-Public Use
  Company Number: IT-MYLANLABS-2019M1111944

PATIENT
  Age: 63 Year
  Sex: Male

DRUGS (8)
  1. OXALIPLATIN. [Suspect]
     Active Substance: OXALIPLATIN
     Indication: RECTAL NEOPLASM
     Dosage: UNK
     Route: 042
     Dates: start: 20190314, end: 20190529
  2. ONDANSETRONE ACCORD HEALTHCARE [Concomitant]
     Active Substance: ONDANSETRON HYDROCHLORIDE
     Dosage: UNK
  3. LOPERAMIDE HEXAL [Concomitant]
     Dosage: UNK
  4. ZARZIO [Concomitant]
     Active Substance: FILGRASTIM
     Dosage: UNK (30 MU/0.5 ML)
  5. CALCIUM LEVOFOLINATE [Concomitant]
     Active Substance: LEVOLEUCOVORIN CALCIUM
     Dosage: UNK
  6. FLUOROURACILE AHCL [Suspect]
     Active Substance: FLUOROURACIL
     Indication: RECTAL NEOPLASM
     Dosage: UNK
     Route: 042
     Dates: start: 20190314, end: 20190528
  7. TWICE [Concomitant]
     Dosage: UNK
  8. PLASIL                             /00041901/ [Concomitant]
     Active Substance: METOCLOPRAMIDE
     Dosage: UNK

REACTIONS (8)
  - Hypersensitivity [Unknown]
  - Dysgeusia [Unknown]
  - Nausea [Unknown]
  - Dry skin [Unknown]
  - Neutropenia [Unknown]
  - Phlebitis [Unknown]
  - Asthenia [Unknown]
  - Insomnia [Unknown]

NARRATIVE: CASE EVENT DATE: 20190414
